FAERS Safety Report 17160573 (Version 1)
Quarter: 2019Q4

REPORT INFORMATION
  Report Type: Spontaneous
  Country: US (occurrence: US)
  Receive Date: 20191216
  Receipt Date: 20191216
  Transmission Date: 20200122
  Serious: Yes (Death)
  Sender: FDA-Public Use
  Company Number: US-FRESENIUS MEDICAL CARE RENAL THERAPIES GROUP-FMC-1912-001559

PATIENT
  Sex: Male

DRUGS (10)
  1. WARFARIN [Concomitant]
     Active Substance: WARFARIN
  2. DELFLEX WITH DEXTROSE 2.5% LOW MAGNESIUM LOW CALCIUM [Suspect]
     Active Substance: CALCIUM CHLORIDE\DEXTROSE\MAGNESIUM CHLORIDE\SODIUM CHLORIDE\SODIUM LACTATE
     Indication: END STAGE RENAL DISEASE
     Dosage: CYCLE BASED, 6 FILLS, FILL VOLUME 2,300ML, FILL TIME 10 MINUTES, DWELL TIME 1 HOUR, DRAIN TIME 30 M
     Route: 033
     Dates: start: 20190311
  3. AMLODIPINE [Concomitant]
     Active Substance: AMLODIPINE BESYLATE
  4. VELPHORO [Concomitant]
     Active Substance: FERRIC OXYHYDROXIDE
  5. FUROSEMIDE. [Concomitant]
     Active Substance: FUROSEMIDE
  6. CRESTOR [Concomitant]
     Active Substance: ROSUVASTATIN CALCIUM
  7. GENTAMICIN. [Concomitant]
     Active Substance: GENTAMICIN
  8. ASPIRIN. [Concomitant]
     Active Substance: ASPIRIN
  9. DIALYVITE [Concomitant]
     Active Substance: ASCORBIC ACID\BIOTIN\CALCIUM PANTOTHENATE\COBALAMIN\FOLIC ACID\NIACINAMIDE\PYRIDOXINE HYDROCHLORIDE\RIBOFLAVIN\THIAMINE MONONITRATE
  10. GABAPENTIN. [Concomitant]
     Active Substance: GABAPENTIN

REACTIONS (1)
  - Death [Fatal]
